FAERS Safety Report 17159254 (Version 2)
Quarter: 2020Q1

REPORT INFORMATION
  Report Type: Spontaneous
  Country: US (occurrence: US)
  Receive Date: 20191216
  Receipt Date: 20200213
  Transmission Date: 20200409
  Serious: Yes (Other)
  Sender: FDA-Public Use
  Company Number: US-PFIZER INC-2019527586

PATIENT
  Age: 63 Year
  Sex: Male
  Weight: 127.44 kg

DRUGS (1)
  1. CLEOCIN [Suspect]
     Active Substance: CLINDAMYCIN PHOSPHATE
     Indication: SKIN DISORDER
     Dosage: UNK UNK, 1X/DAY(APPLY ONCE A DAY (QD) TO FACE)
     Route: 061
     Dates: start: 2016

REACTIONS (3)
  - Off label use [Unknown]
  - Cerebrovascular accident [Unknown]
  - Mental disorder [Unknown]
